FAERS Safety Report 9041248 (Version 2)
Quarter: 2013Q1

REPORT INFORMATION
  Report Type: Spontaneous
  Country: US (occurrence: None)
  Receive Date: 20130114
  Receipt Date: 20130122
  Transmission Date: 20140127
  Serious: Yes (Other)
  Sender: FDA-Public Use
  Company Number: 1211-710

PATIENT
  Sex: Female
  Weight: 77.11 kg

DRUGS (4)
  1. EYLEA (AFLIBERCEPT) (INJECTION) (AFLIBERCEPT) [Suspect]
     Indication: MACULAR DEGENERATION
     Dosage: 1 IN 1 M
     Dates: start: 20120514
  2. ACTONEL (RISEDRONATE SODIUM) [Concomitant]
  3. VITAMINS (KAPSOVIT) [Concomitant]
  4. DORZOLAMIDE HCL (DORZOLAMIDE HYDROCHLORIDE) [Concomitant]

REACTIONS (2)
  - Nasopharyngitis [None]
  - Eye haemorrhage [None]
